FAERS Safety Report 4445325-9 (Version None)
Quarter: 2004Q3

REPORT INFORMATION
  Report Type: 
  Country: None (occurrence: None)
  Receive Date: 20040903
  Receipt Date: 20040819
  Transmission Date: 20050211
  Serious: Yes (Hospitalization)
  Sender: FDA-Public Use
  Company Number: 04P-062-0269136-00

PATIENT
  Age: 27 Year
  Sex: Female
  Weight: 65 kg

DRUGS (5)
  1. BIAXIN [Suspect]
     Indication: SUICIDE ATTEMPT
     Dosage: 250 MG, 8 IN 1 D, PER ORAL
     Route: 048
     Dates: start: 20040802, end: 20040802
  2. DEXAMETHASONE [Suspect]
     Indication: SUICIDE ATTEMPT
     Dosage: 20 MG, 4 IN 1 D, PER ORAL
     Route: 048
     Dates: start: 20040802, end: 20040802
  3. IBUPROFEN [Suspect]
     Indication: SUICIDE ATTEMPT
     Dosage: 200 MG, 6 IN 1 D, PER ORAL
     Route: 048
     Dates: start: 20040802, end: 20040802
  4. PARACETAMOL [Suspect]
     Indication: SUICIDE ATTEMPT
     Dosage: 500 MG, 50 IN 1 D, PER ORAL
     Route: 048
     Dates: start: 20040802, end: 20040802
  5. OPTALIDON N DRAGEES [Suspect]
     Indication: SUICIDE ATTEMPT
     Dosage: 1 TABLET, 6 IN 1 D, PER ORAL
     Route: 048
     Dates: start: 20040802, end: 20040802

REACTIONS (4)
  - MULTIPLE DRUG OVERDOSE [None]
  - SOMNOLENCE [None]
  - SUICIDE ATTEMPT [None]
  - VOMITING [None]
